FAERS Safety Report 12161985 (Version 1)
Quarter: 2016Q1

REPORT INFORMATION
  Report Type: Spontaneous
  Country: US (occurrence: None)
  Receive Date: 20160308
  Receipt Date: 20160308
  Transmission Date: 20160526
  Serious: Yes (Hospitalization)
  Sender: FDA-Public Use
  Company Number: None

PATIENT
  Age: 73 Year
  Sex: Male
  Weight: 106.3 kg

DRUGS (12)
  1. ALPHAGAN P [Concomitant]
     Active Substance: BRIMONIDINE TARTRATE
  2. ZYLOPRIM [Concomitant]
     Active Substance: ALLOPURINOL
  3. APRESOLINE HYDROCHLORIDE [Concomitant]
     Active Substance: HYDRALAZINE HYDROCHLORIDE
  4. HUMULIN NOS [Concomitant]
     Active Substance: INSULIN HUMAN
  5. MORPHINE PCA [Suspect]
     Active Substance: MORPHINE
     Indication: PAIN
     Dosage: 30MG/30ML CONTINUOUS IV
     Route: 042
  6. LOPRESSOR [Concomitant]
     Active Substance: METOPROLOL TARTRATE
  7. NEURONTIN [Concomitant]
     Active Substance: GABAPENTIN
  8. THERAGRAN [Concomitant]
     Active Substance: VITAMINS
  9. HYDROMORPHONE/0.9% NACL WITH BASAL [Suspect]
     Active Substance: HYDROMORPHONE\SODIUM CHLORIDE
     Indication: PAIN
     Dosage: 10MG/50ML PCA CONTINUOUS IV
     Route: 042
  10. COLLAGENASE SANTYL [Concomitant]
     Active Substance: COLLAGENASE CLOSTRIDIUM HISTOLYTICUM
  11. APAP/CODEINE [Concomitant]
     Active Substance: ACETAMINOPHEN\CODEINE PHOSPHATE
  12. NIACIN. [Concomitant]
     Active Substance: NIACIN

REACTIONS (5)
  - Diaphragmatic paralysis [None]
  - Respiratory failure [None]
  - Pulmonary oedema [None]
  - Drug hypersensitivity [None]
  - Hypoxia [None]

NARRATIVE: CASE EVENT DATE: 20150620
